FAERS Safety Report 8889488 (Version 1)
Quarter: 2012Q4

REPORT INFORMATION
  Report Type: Spontaneous
  Country: FR (occurrence: None)
  Receive Date: 20121031
  Receipt Date: 20121031
  Transmission Date: 20130627
  Serious: Yes (Hospitalization)
  Sender: FDA-Public Use
  Company Number: FR-2012-3635

PATIENT
  Age: 58 Year
  Sex: Female

DRUGS (11)
  1. NAVELBINE [Suspect]
     Dates: start: 20120820, end: 201208
  2. CISPLATIN [Suspect]
     Dates: end: 201208
  3. LOVENOX (ENOXAPARIN SODIUM) [Concomitant]
  4. INEXIUM (ESOMEPRAZOLE MAGNESIUM) [Concomitant]
  5. NEURONTIN (GABAPENTIN) [Concomitant]
  6. OXYCODON (OXYCODONE HYDROCHLORIDE) [Concomitant]
  7. OXYNORM (OXYCODONE HYDROCHLORIDE) [Concomitant]
  8. ZELITREX (VALACICLOVIR HYDROCHLORIDE) [Concomitant]
  9. PARACETAMOL (PARACETAMOL) [Concomitant]
  10. AERIUS (DESLORATADINE) [Concomitant]
  11. SERESTA (OXAZEPAM) [Concomitant]

REACTIONS (1)
  - Colitis [None]
